FAERS Safety Report 10069292 (Version 2)
Quarter: 2014Q2

REPORT INFORMATION
  Report Type: Spontaneous
  Country: IT (occurrence: IT)
  Receive Date: 20140409
  Receipt Date: 20140530
  Transmission Date: 20141212
  Serious: Yes (Other)
  Sender: FDA-Public Use
  Company Number: IT-BAXTER-2014BAX016783

PATIENT
  Age: 76 Year
  Sex: Male

DRUGS (2)
  1. ENDOXAN BAXTER [Suspect]
     Indication: PLASMA CELL MYELOMA
     Route: 048
     Dates: start: 20130910, end: 20140105
  2. REVLIMID [Suspect]
     Indication: PLASMA CELL MYELOMA
     Route: 048
     Dates: start: 20130109, end: 20130831

REACTIONS (1)
  - Basal cell carcinoma [Unknown]
